FAERS Safety Report 12144383 (Version 2)
Quarter: 2016Q1

REPORT INFORMATION
  Report Type: Spontaneous
  Country: US (occurrence: US)
  Receive Date: 20160304
  Receipt Date: 20160314
  Transmission Date: 20160526
  Serious: No
  Sender: FDA-Public Use
  Company Number: US-PFIZER INC-2016078727

PATIENT
  Age: 19 Year
  Sex: Female

DRUGS (2)
  1. GENOTROPIN [Suspect]
     Active Substance: SOMATROPIN
     Indication: DWARFISM
     Dosage: 1.2 MG, FIVE DAYS PER WEEK
     Dates: start: 20140321
  2. GENOTROPIN [Suspect]
     Active Substance: SOMATROPIN
     Indication: BLOOD GROWTH HORMONE DECREASED
     Dosage: 12 MG, IN HER ARMS, THIGHS OR STOMACH, ONCE A DAY, FIVE DAYS A WEEK
     Dates: start: 2014

REACTIONS (4)
  - Injection site haemorrhage [Unknown]
  - Poor quality drug administered [Unknown]
  - Injection site bruising [Unknown]
  - Product quality issue [Unknown]
